FAERS Safety Report 14446070 (Version 2)
Quarter: 2018Q1

REPORT INFORMATION
  Report Type: Spontaneous
  Country: US (occurrence: US)
  Receive Date: 20180126
  Receipt Date: 20180207
  Transmission Date: 20180509
  Serious: Yes (Life-Threatening, Hospitalization, Other)
  Sender: FDA-Public Use
  Company Number: US-ALLERGAN-1804086US

PATIENT
  Age: 54 Year
  Sex: Female

DRUGS (4)
  1. DOXAZOCIN [Suspect]
     Active Substance: DOXAZOSIN MESYLATE
     Indication: SUICIDAL IDEATION
     Dosage: 8 MG, UNK
     Route: 065
  2. AMLODIPINE [Suspect]
     Active Substance: AMLODIPINE BESYLATE
     Indication: SUICIDAL IDEATION
     Dosage: 10 MG, UNK
     Route: 065
  3. ATENOLOL. [Suspect]
     Active Substance: ATENOLOL
     Indication: SUICIDAL IDEATION
     Dosage: 50 MG, UNK
     Route: 065
  4. HYDROCHLOROTHIAZIDE UNK [Suspect]
     Active Substance: HYDROCHLOROTHIAZIDE
     Indication: SUICIDAL IDEATION
     Dosage: 12.5 MG, UNK
     Route: 065

REACTIONS (9)
  - Abdominal pain [Recovering/Resolving]
  - Intentional overdose [Recovering/Resolving]
  - Somnolence [Recovering/Resolving]
  - Pulmonary oedema [Recovered/Resolved]
  - Hypoglycaemia [Recovered/Resolved]
  - Sinus bradycardia [Recovering/Resolving]
  - Off label use [Unknown]
  - Suicide attempt [Recovered/Resolved]
  - Hypotension [Recovering/Resolving]
